FAERS Safety Report 4278258-1 (Version None)
Quarter: 2004Q1

REPORT INFORMATION
  Report Type: 
  Country: None (occurrence: None)
  Receive Date: 20040121
  Receipt Date: 20040107
  Transmission Date: 20041129
  Serious: Yes (Hospitalization)
  Sender: FDA-Public Use
  Company Number: JP_040102464

PATIENT
  Sex: Male
  Weight: 17 kg

DRUGS (1)
  1. SOMATROPIN [Suspect]
     Indication: GROWTH HORMONE DEFICIENCY
     Dosage: 0.175 MG/WEEK

REACTIONS (4)
  - ADRENAL INSUFFICIENCY [None]
  - CALCINOSIS [None]
  - HYPONATRAEMIA [None]
  - PINEAL GERMINOMA [None]
